FAERS Safety Report 9933582 (Version 2)
Quarter: 2014Q1

REPORT INFORMATION
  Report Type: Report from Study
  Country: US (occurrence: US)
  Receive Date: 20140228
  Receipt Date: 20140228
  Transmission Date: 20141002
  Serious: No
  Sender: FDA-Public Use
  Company Number: US-MYLANLABS-2013S1025258

PATIENT
  Age: 34 Year
  Sex: Female
  Weight: 72.58 kg

DRUGS (4)
  1. AMNESTEEM CAPSULES [Suspect]
     Indication: ACNE
     Route: 048
     Dates: start: 20130829, end: 20131001
  2. AMNESTEEM CAPSULES [Suspect]
     Indication: ACNE
     Route: 048
     Dates: start: 20130829, end: 20131001
  3. ISOTRETINOIN CAPSULES [Suspect]
     Indication: ACNE
     Route: 048
     Dates: start: 20131001, end: 20131003
  4. ISOTRETINOIN CAPSULES [Suspect]
     Indication: ACNE
     Route: 048
     Dates: start: 20131001, end: 20131003

REACTIONS (1)
  - Hepatic enzyme increased [Recovered/Resolved]
